FAERS Safety Report 11141327 (Version 1)
Quarter: 2015Q2

REPORT INFORMATION
  Report Type: Spontaneous
  Country: US (occurrence: US)
  Receive Date: 20150527
  Receipt Date: 20150527
  Transmission Date: 20150821
  Serious: Yes (Other)
  Sender: FDA-Public Use
  Company Number: US-GILEAD-2015-0153033

PATIENT
  Age: 68 Year
  Sex: Female
  Weight: 61.68 kg

DRUGS (2)
  1. GLEEVEC [Concomitant]
     Active Substance: IMATINIB MESYLATE
     Indication: CHRONIC MYELOID LEUKAEMIA
     Dosage: UNK, Q2WK
  2. HARVONI [Suspect]
     Active Substance: LEDIPASVIR\SOFOSBUVIR
     Indication: HEPATITIS C
     Dosage: UNK
     Route: 065
     Dates: start: 20150401

REACTIONS (7)
  - Haematochezia [Unknown]
  - Face oedema [Unknown]
  - Weight increased [Unknown]
  - Tremor [Unknown]
  - Abdominal pain [Unknown]
  - Anaemia [Not Recovered/Not Resolved]
  - Rash [Unknown]
